FAERS Safety Report 21358624 (Version 2)
Quarter: 2023Q4

REPORT INFORMATION
  Report Type: Spontaneous
  Country: FR (occurrence: FR)
  Receive Date: 20220921
  Receipt Date: 20231113
  Transmission Date: 20240110
  Serious: Yes (Other)
  Sender: FDA-Public Use
  Company Number: FR-AFSSAPS-CN20221747

PATIENT
  Age: 58 Year
  Sex: Female
  Weight: 90 kg

DRUGS (13)
  1. LEVETIRACETAM [Suspect]
     Active Substance: LEVETIRACETAM
     Indication: Epilepsy
     Dosage: 1500 MILLIGRAM, 500 MG MORNING, NOON AND EVENING
     Route: 048
     Dates: start: 20220621, end: 20220718
  2. PREDNISONE [Concomitant]
     Active Substance: PREDNISONE
     Indication: Brain oedema
     Dosage: 55 MILLIGRAM
     Route: 048
     Dates: start: 20220723, end: 20220728
  3. PREDNISONE [Concomitant]
     Active Substance: PREDNISONE
     Indication: Hypersensitivity
     Dosage: 15 MILLIGRAM
     Route: 048
     Dates: start: 20220728
  4. PREDNISONE [Concomitant]
     Active Substance: PREDNISONE
     Dosage: 15 MILLIGRAM
     Route: 048
  5. LACTULOSE\MINERAL OIL\PARAFFIN [Concomitant]
     Active Substance: LACTULOSE\MINERAL OIL\PARAFFIN
     Indication: Constipation
     Dosage: 1 DOSAGE FORM, 1 SPOON IN THE EVENING
     Route: 065
  6. ALPRAZOLAM [Concomitant]
     Active Substance: ALPRAZOLAM
     Indication: Anxiety
     Dosage: 0.25 MILLIGRAM
     Route: 048
  7. ONDANSETRON [Concomitant]
     Active Substance: ONDANSETRON
     Indication: Prophylaxis of nausea and vomiting
     Dosage: 8 MILLIGRAM
     Route: 048
     Dates: start: 20220621, end: 20220625
  8. ONDANSETRON [Concomitant]
     Active Substance: ONDANSETRON
     Dosage: 8 MILLIGRAM
     Route: 048
     Dates: start: 20220718, end: 20220722
  9. TRANSIPEG 5,9 g, poudre pour solution buvable en sachet [Concomitant]
     Indication: Constipation
     Dosage: 1 DOSAGE FORM, 1 SACHET IN THE MORNING
     Route: 065
  10. TEMODAL [Concomitant]
     Active Substance: TEMOZOLOMIDE
     Indication: Glioblastoma
     Dosage: 150 MILLIGRAM/SQ. METER
     Route: 048
     Dates: start: 20220621, end: 20220625
  11. TEMODAL [Concomitant]
     Active Substance: TEMOZOLOMIDE
     Dosage: 75 MILLIGRAM/SQ. METER
     Route: 048
     Dates: start: 202204, end: 20220619
  12. TEMODAL [Concomitant]
     Active Substance: TEMOZOLOMIDE
     Dosage: 150 MILLIGRAM/SQ. METER
     Route: 048
     Dates: start: 20220718, end: 20220722
  13. RAMIPRIL [Concomitant]
     Active Substance: RAMIPRIL
     Indication: Hypertension
     Dosage: 5 MILLIGRAM
     Route: 048

REACTIONS (1)
  - Eczema [Recovered/Resolved]

NARRATIVE: CASE EVENT DATE: 20220711
